FAERS Safety Report 12325598 (Version 1)
Quarter: 2016Q2

REPORT INFORMATION
  Report Type: Spontaneous
  Country: ES (occurrence: ES)
  Receive Date: 20160503
  Receipt Date: 20160503
  Transmission Date: 20160815
  Serious: Yes (Other)
  Sender: FDA-Public Use
  Company Number: ES-009507513-1604ESP017968

PATIENT
  Age: 73 Year
  Sex: Female

DRUGS (8)
  1. ELOCOM [Suspect]
     Active Substance: MOMETASONE FUROATE
     Indication: ALOPECIA
     Route: 061
     Dates: start: 20160306
  2. INEGY [Concomitant]
     Active Substance: EZETIMIBE\SIMVASTATIN
  3. MINOXIDIL. [Suspect]
     Active Substance: MINOXIDIL
     Indication: ALOPECIA
     Dosage: SOLUCION AL 5%
     Route: 061
     Dates: start: 20160306
  4. DIPROSALIC [Suspect]
     Active Substance: BETAMETHASONE DIPROPIONATE
     Route: 061
     Dates: start: 20160306
  5. ALLOPURINOL. [Concomitant]
     Active Substance: ALLOPURINOL
  6. ATARAX [Concomitant]
     Active Substance: HYDROXYZINE\HYDROXYZINE HYDROCHLORIDE
  7. EMCONCOR COR [Concomitant]
     Active Substance: BISOPROLOL
  8. COROPRES [Concomitant]
     Active Substance: CARVEDILOL

REACTIONS (1)
  - Hypertensive crisis [Recovered/Resolved]

NARRATIVE: CASE EVENT DATE: 20160308
